FAERS Safety Report 13130400 (Version 1)
Quarter: 2017Q1

REPORT INFORMATION
  Report Type: Report from Study
  Country: DE (occurrence: DE)
  Receive Date: 20170119
  Receipt Date: 20170119
  Transmission Date: 20170428
  Serious: Yes (Hospitalization, Other)
  Sender: FDA-Public Use
  Company Number: DE-ROCHE-1881359

PATIENT
  Sex: Female

DRUGS (1)
  1. RITUXIMAB [Suspect]
     Active Substance: RITUXIMAB
     Indication: RHEUMATOID ARTHRITIS
     Dosage: LAST DOSE PRIOR TO SAE : 24-MAY-2016.
     Route: 065

REACTIONS (4)
  - Pancreatic cyst [Unknown]
  - Gastrointestinal angiodysplasia [Recovered/Resolved]
  - Cholelithiasis [Unknown]
  - Bladder disorder [Unknown]

NARRATIVE: CASE EVENT DATE: 201610
